FAERS Safety Report 11169217 (Version 1)
Quarter: 2015Q2

REPORT INFORMATION
  Report Type: Spontaneous
  Country: US (occurrence: US)
  Receive Date: 20150605
  Receipt Date: 20150605
  Transmission Date: 20150821
  Serious: Yes (Hospitalization)
  Sender: FDA-Public Use
  Company Number: PHHY2015US067305

PATIENT
  Age: 79 Year
  Sex: Male
  Weight: 59 kg

DRUGS (3)
  1. INSULIN [Concomitant]
     Active Substance: INSULIN NOS
     Indication: PROPHYLAXIS
     Route: 058
  2. ENOXAPARIN [Suspect]
     Active Substance: ENOXAPARIN
     Indication: PROPHYLAXIS
     Dosage: 30 MG, DAILY
     Route: 058
  3. ENOXAPARIN [Suspect]
     Active Substance: ENOXAPARIN
     Dosage: 40 MG, DAILY
     Route: 058

REACTIONS (4)
  - Respiratory failure [Not Recovered/Not Resolved]
  - Abdominal wall haematoma [Unknown]
  - Abdominal pain [Unknown]
  - Pneumonia [Not Recovered/Not Resolved]
